FAERS Safety Report 20516360 (Version 1)
Quarter: 2022Q1

REPORT INFORMATION
  Report Type: Spontaneous
  Country: US (occurrence: US)
  Receive Date: 20220225
  Receipt Date: 20220225
  Transmission Date: 20220423
  Serious: No
  Sender: FDA-Public Use
  Company Number: US-BIOVITRUM-2022US02573

PATIENT
  Sex: Female

DRUGS (2)
  1. SYNAGIS [Suspect]
     Active Substance: PALIVIZUMAB
     Indication: Premature baby
     Dosage: (50MG/0.5ML)
     Route: 030
     Dates: start: 20201203
  2. SYNAGIS [Suspect]
     Active Substance: PALIVIZUMAB
     Dosage: (100MG/1ML)
     Route: 030
     Dates: start: 20210309

REACTIONS (1)
  - COVID-19 [Unknown]
